FAERS Safety Report 8219639-0 (Version None)
Quarter: 2012Q1

REPORT INFORMATION
  Report Type: 
  Country: None (occurrence: None)
  Receive Date: 20120319
  Receipt Date: 20120309
  Transmission Date: 20120608
  Serious: No
  Sender: FDA-Public Use
  Company Number: US-BAYER-2012-025508

PATIENT
  Age: 68 Year
  Sex: Female
  Weight: 27 kg

DRUGS (2)
  1. ALEVE (CAPLET) [Suspect]
     Indication: SLEEP DISORDER THERAPY
  2. ALEVE (CAPLET) [Suspect]
     Indication: ANALGESIC THERAPY
     Dosage: 1 DF, UNK
     Route: 048
     Dates: start: 20050115

REACTIONS (1)
  - NO ADVERSE EVENT [None]
